FAERS Safety Report 15958775 (Version 1)
Quarter: 2019Q1

REPORT INFORMATION
  Report Type: Report from Study
  Country: None (occurrence: CA)
  Receive Date: 20190213
  Receipt Date: 20190213
  Transmission Date: 20190417
  Serious: Yes (Other)
  Sender: FDA-Public Use
  Company Number: CA-ABBVIE-19K-028-2659323-00

PATIENT
  Sex: Female

DRUGS (1)
  1. HUMIRA [Suspect]
     Active Substance: ADALIMUMAB
     Indication: RHEUMATOID ARTHRITIS
     Route: 058

REACTIONS (11)
  - Limb mass [Unknown]
  - Fall [Recovered/Resolved]
  - Erythema [Unknown]
  - Joint effusion [Unknown]
  - Complication associated with device [Unknown]
  - Fatigue [Not Recovered/Not Resolved]
  - Knee arthroplasty [Unknown]
  - Fall [Recovered/Resolved]
  - Peripheral swelling [Unknown]
  - Medical device site pain [Not Recovered/Not Resolved]
  - Nasopharyngitis [Recovered/Resolved]

NARRATIVE: CASE EVENT DATE: 2018
